FAERS Safety Report 8293224-7 (Version None)
Quarter: 2012Q2

REPORT INFORMATION
  Report Type: 
  Country: None (occurrence: None)
  Receive Date: 20120417
  Receipt Date: 20120410
  Transmission Date: 20120825
  Serious: Yes (Other)
  Sender: FDA-Public Use
  Company Number: US-B.I. PHARMACEUTICALS,INC./RIDGEFIELD-2012-EU-02018GD

PATIENT
  Age: 64 Year
  Sex: Male

DRUGS (2)
  1. L-DOPA [Suspect]
     Indication: PARKINSON'S DISEASE
     Dosage: 1000 MG
  2. PRAMIPEXOLE DIHYDROCHLORIDE [Suspect]
     Indication: PARKINSON'S DISEASE

REACTIONS (3)
  - PSYCHOTIC DISORDER [None]
  - DELUSION [None]
  - JEALOUS DELUSION [None]
